FAERS Safety Report 8608954-4 (Version None)
Quarter: 2012Q3

REPORT INFORMATION
  Report Type: 
  Country: None (occurrence: None)
  Receive Date: 20120808
  Receipt Date: 20120723
  Transmission Date: 20120928
  Serious: Yes (Hospitalization, Congenital Anomaly, Other)
  Sender: FDA-Public Use
  Company Number: 2012MA009072

PATIENT
  Sex: Male

DRUGS (1)
  1. PROPYL-THIOURACIL [Suspect]
     Indication: FOETAL EXPOSURE DURING PREGNANCY
     Dosage: 100 MG;BID;TRPL (2 TRIMESTER)
     Route: 064

REACTIONS (12)
  - PALPITATIONS [None]
  - MATERNAL EXPOSURE DURING PREGNANCY [None]
  - GOITRE [None]
  - THYROXINE FREE INCREASED [None]
  - BLOOD THYROID STIMULATING HORMONE INCREASED [None]
  - DYSPNOEA [None]
  - TRI-IODOTHYRONINE INCREASED [None]
  - CONGENITAL ANOMALY [None]
  - APLASIA [None]
  - TREMOR [None]
  - THYROID DISORDER [None]
  - MATERNAL DRUGS AFFECTING FOETUS [None]
